FAERS Safety Report 9395434 (Version 2)
Quarter: 2013Q4

REPORT INFORMATION
  Report Type: Spontaneous
  Country: US (occurrence: US)
  Receive Date: 20130711
  Receipt Date: 20131010
  Transmission Date: 20140711
  Serious: Yes (Other)
  Sender: FDA-Public Use
  Company Number: US-ASTELLAS-2013US006155

PATIENT
  Age: 84 Year
  Sex: Female

DRUGS (1)
  1. MYRBETRIQ [Suspect]
     Indication: URGE INCONTINENCE
     Dosage: 1/2 TABLET
     Route: 048
     Dates: start: 20130507, end: 201305

REACTIONS (3)
  - Wrong technique in drug usage process [Unknown]
  - Rash [Unknown]
  - Pruritus [Unknown]
